FAERS Safety Report 10090219 (Version 4)
Quarter: 2014Q2

REPORT INFORMATION
  Report Type: Spontaneous
  Country: US (occurrence: US)
  Receive Date: 20140421
  Receipt Date: 20140505
  Transmission Date: 20141212
  Serious: Yes (Life-Threatening, Hospitalization, Disabling)
  Sender: FDA-Public Use
  Company Number: US-JNJFOC-20140413837

PATIENT
  Age: 70 Year
  Sex: Male
  Weight: 60.6 kg

DRUGS (7)
  1. XARELTO [Suspect]
     Indication: CEREBROVASCULAR ACCIDENT PROPHYLAXIS
     Dosage: 1 YEAR
     Route: 048
  2. XARELTO [Suspect]
     Indication: ATRIAL FIBRILLATION
     Dosage: 1 YEAR
     Route: 048
  3. AMIODARONE [Concomitant]
     Route: 048
  4. SINEMET [Concomitant]
     Dosage: 25/100 PO THRICE DAILY
     Route: 048
  5. CALCIUM W/VITAMIN D [Concomitant]
     Route: 065
  6. LIPITOR [Concomitant]
     Dosage: QHS (EVERY NIGHT AT BEDTIME)
     Route: 048
  7. EUCERIN [Concomitant]
     Dosage: QHS (EVERY NIGHT AT BEDTIME)
     Route: 061

REACTIONS (1)
  - Haemorrhage intracranial [Recovered/Resolved]
